FAERS Safety Report 12341082 (Version 1)
Quarter: 2016Q2

REPORT INFORMATION
  Report Type: Spontaneous
  Country: US (occurrence: US)
  Receive Date: 20160506
  Receipt Date: 20160506
  Transmission Date: 20160815
  Serious: No
  Sender: FDA-Public Use
  Company Number: US-BAUSCH-BL-2015-021850

PATIENT
  Age: 64 Year
  Sex: Male

DRUGS (1)
  1. OFLOXACIN OTIC [Suspect]
     Active Substance: OFLOXACIN
     Indication: PREOPERATIVE CARE
     Route: 061
     Dates: start: 20150811, end: 20150910

REACTIONS (6)
  - Vision blurred [Unknown]
  - Photophobia [Unknown]
  - Treatment noncompliance [Recovered/Resolved]
  - Drug dispensing error [Recovered/Resolved]
  - Eye pain [Unknown]
  - Headache [Unknown]

NARRATIVE: CASE EVENT DATE: 2015
